FAERS Safety Report 9323611 (Version 1)
Quarter: 2013Q2

REPORT INFORMATION
  Report Type: Report from Study
  Country: FR (occurrence: FR)
  Receive Date: 20130603
  Receipt Date: 20130603
  Transmission Date: 20140414
  Serious: Yes (Other)
  Sender: FDA-Public Use
  Company Number: FR-JNJFOC-20090704324

PATIENT
  Age: 57 Year
  Sex: Female
  Weight: 53 kg

DRUGS (4)
  1. STELARA [Suspect]
     Indication: PSORIASIS
     Route: 058
     Dates: start: 20090515
  2. VOLTARENE [Concomitant]
     Indication: RHEUMATIC DISORDER
     Route: 048
     Dates: start: 200901
  3. DI-ANTALVIC [Concomitant]
     Indication: RHEUMATIC DISORDER
     Route: 048
     Dates: start: 2008
  4. DEPAKINE [Concomitant]
     Indication: EPILEPSY
     Route: 048
     Dates: start: 1990

REACTIONS (1)
  - Pustular psoriasis [Recovered/Resolved]
